FAERS Safety Report 9378515 (Version 1)
Quarter: 2013Q3

REPORT INFORMATION
  Report Type: Spontaneous
  Country: JP (occurrence: JP)
  Receive Date: 20130702
  Receipt Date: 20130702
  Transmission Date: 20140515
  Serious: Yes (Other)
  Sender: FDA-Public Use
  Company Number: JP-AMGEN-JPNSP2013043825

PATIENT
  Age: 68 Year
  Sex: Male
  Weight: 60 kg

DRUGS (4)
  1. ENBREL [Suspect]
     Indication: RHEUMATOID ARTHRITIS
     Dosage: 50 MG, WEEKLY
     Route: 058
     Dates: start: 20121002, end: 20130604
  2. PROGRAF [Concomitant]
     Indication: RHEUMATOID ARTHRITIS
     Dosage: 2 MG, 1X/DAY
     Route: 048
  3. ISCOTIN                            /00030201/ [Concomitant]
     Indication: PULMONARY TUBERCULOSIS
     Dosage: 100 MG, 3X/DAY
     Route: 048
     Dates: start: 20121002
  4. PYDOXAL [Concomitant]
     Indication: PULMONARY TUBERCULOSIS
     Dosage: 30 MG, 1X/DAY
     Route: 048
     Dates: start: 20121002

REACTIONS (2)
  - Red blood cell sedimentation rate abnormal [Unknown]
  - Interstitial lung disease [Not Recovered/Not Resolved]
